FAERS Safety Report 8265726-0 (Version None)
Quarter: 2012Q2

REPORT INFORMATION
  Report Type: 
  Country: None (occurrence: None)
  Receive Date: 20120406
  Receipt Date: 20120330
  Transmission Date: 20120825
  Serious: Yes (Other)
  Sender: FDA-Public Use
  Company Number: US-JNJFOC-20120400475

PATIENT
  Sex: Female
  Weight: 68.04 kg

DRUGS (5)
  1. DURAGESIC-100 [Suspect]
     Dosage: 100 UG/HR+25 UG/HR+100 UG/HR
     Route: 062
  2. DURAGESIC-100 [Suspect]
     Dosage: 100 UG/HR 25 UG/HR
     Route: 062
  3. DURAGESIC-100 [Suspect]
     Indication: PAIN
     Route: 062
  4. CLONIDINE [Concomitant]
     Indication: BLOOD PRESSURE
     Route: 048
  5. KLOR-CON [Concomitant]
     Indication: PRODUCT USED FOR UNKNOWN INDICATION
     Route: 048

REACTIONS (9)
  - SWELLING [None]
  - MALAISE [None]
  - PRODUCT QUALITY ISSUE [None]
  - TREATMENT NONCOMPLIANCE [None]
  - PRODUCT PHYSICAL ISSUE [None]
  - DEPRESSION [None]
  - BLOOD PRESSURE INCREASED [None]
  - PAIN [None]
  - EYE DISORDER [None]
